FAERS Safety Report 8247121-3 (Version None)
Quarter: 2012Q1

REPORT INFORMATION
  Report Type: 
  Country: None (occurrence: None)
  Receive Date: 20120329
  Receipt Date: 20120329
  Transmission Date: 20120608
  Serious: No
  Sender: FDA-Public Use
  Company Number: None

PATIENT
  Sex: Female
  Weight: 77.1115 kg

DRUGS (2)
  1. DEXILANT [Suspect]
     Indication: GASTROOESOPHAGEAL REFLUX DISEASE
     Dosage: 60MG ONCE A DAY ORAL
     Route: 048
     Dates: start: 20120131, end: 20120305
  2. DEXILANT [Suspect]
     Indication: GASTRITIS
     Dosage: 60MG ONCE A DAY ORAL
     Route: 048
     Dates: start: 20120131, end: 20120305

REACTIONS (5)
  - ANXIETY [None]
  - FEELING JITTERY [None]
  - MYALGIA [None]
  - ABDOMINAL PAIN UPPER [None]
  - DIARRHOEA [None]
